FAERS Safety Report 13909840 (Version 1)
Quarter: 2017Q3

REPORT INFORMATION
  Report Type: Spontaneous
  Country: CA (occurrence: CA)
  Receive Date: 20170828
  Receipt Date: 20170828
  Transmission Date: 20171127
  Serious: Yes (Other)
  Sender: FDA-Public Use
  Company Number: CA-TEVA-798259ACC

PATIENT
  Age: 45 Year
  Sex: Female

DRUGS (1)
  1. RATIO-NYSTATIN [Suspect]
     Active Substance: NYSTATIN
     Indication: CANDIDA INFECTION
     Dosage: 16 ML DAILY; SWISH IN THE MOUTH AND SWALLOW
     Route: 048
     Dates: start: 20170814

REACTIONS (8)
  - Dyspnoea [Recovered/Resolved]
  - Accidental exposure to product [Unknown]
  - Vomiting [Recovering/Resolving]
  - Retching [Recovering/Resolving]
  - Expired product administered [Unknown]
  - Dyspnoea [Recovering/Resolving]
  - Choking [Recovering/Resolving]
  - Shock [Recovering/Resolving]

NARRATIVE: CASE EVENT DATE: 20170814
